FAERS Safety Report 4699248-0 (Version None)
Quarter: 2005Q2

REPORT INFORMATION
  Report Type: 
  Country: None (occurrence: None)
  Receive Date: 20050624
  Receipt Date: 20050311
  Transmission Date: 20051028
  Serious: Yes (Hospitalization, Other)
  Sender: FDA-Public Use
  Company Number: US-MERCK-0503USA02700

PATIENT
  Age: 47 Year
  Sex: Male
  Weight: 114 kg

DRUGS (16)
  1. VIOXX [Suspect]
     Indication: OSTEOARTHRITIS
     Route: 048
     Dates: start: 20031124, end: 20041004
  2. VIOXX [Suspect]
     Indication: PAIN
     Route: 048
     Dates: start: 20031124, end: 20041004
  3. METHADONE HYDROCHLORIDE [Concomitant]
     Route: 048
     Dates: start: 20031001
  4. AVINZA [Concomitant]
     Route: 048
     Dates: start: 20031001
  5. TOPROL-XL [Concomitant]
     Route: 048
     Dates: start: 20030101, end: 20040601
  6. ZOCOR [Concomitant]
     Route: 048
     Dates: start: 20010101
  7. PROZAC [Concomitant]
     Route: 048
     Dates: start: 20010101, end: 20050429
  8. TRAZODONE HYDROCHLORIDE [Concomitant]
     Route: 048
     Dates: start: 20030101
  9. LITHOBID [Concomitant]
     Route: 048
     Dates: start: 20010101, end: 20050401
  10. PAXIL [Concomitant]
     Route: 048
     Dates: start: 20010101
  11. RISPERDAL [Concomitant]
     Route: 048
     Dates: start: 20010101, end: 20030101
  12. ZANTAC [Concomitant]
     Route: 065
  13. ZANAFLEX [Concomitant]
     Route: 065
  14. TOPAMAX [Concomitant]
     Route: 065
  15. TRIAMTERENE [Concomitant]
     Route: 065
  16. SYNTHROID [Concomitant]
     Route: 065

REACTIONS (32)
  - ANAEMIA [None]
  - ARTHROPATHY [None]
  - BACTERIAL INFECTION [None]
  - BUNDLE BRANCH BLOCK RIGHT [None]
  - CARDIAC ARREST [None]
  - CARDIAC MURMUR [None]
  - CARDIO-RESPIRATORY ARREST [None]
  - CHEST PAIN [None]
  - CONSTIPATION [None]
  - CONTUSION [None]
  - CONVULSION [None]
  - DEPRESSION [None]
  - DIZZINESS [None]
  - DRUG ABUSER [None]
  - DYSKINESIA [None]
  - DYSPNOEA [None]
  - FATIGUE [None]
  - HEART RATE IRREGULAR [None]
  - HYPERTENSION [None]
  - HYPOAESTHESIA [None]
  - LOSS OF CONSCIOUSNESS [None]
  - MUSCLE TWITCHING [None]
  - MYOCARDIAL INFARCTION [None]
  - OEDEMA PERIPHERAL [None]
  - PANIC ATTACK [None]
  - POST PROCEDURAL COMPLICATION [None]
  - RESPIRATORY ARREST [None]
  - SOMNOLENCE [None]
  - SPUTUM CULTURE POSITIVE [None]
  - TRANSIENT ISCHAEMIC ATTACK [None]
  - URINARY TRACT DISORDER [None]
  - WOUND INFECTION STAPHYLOCOCCAL [None]
